FAERS Safety Report 21497184 (Version 1)
Quarter: 2022Q4

REPORT INFORMATION
  Report Type: Report from Study
  Country: US (occurrence: US)
  Receive Date: 20221023
  Receipt Date: 20221023
  Transmission Date: 20230113
  Serious: No
  Sender: FDA-Public Use
  Company Number: US-ABBVIE-4173309

PATIENT
  Sex: Female

DRUGS (3)
  1. HUMIRA [Suspect]
     Active Substance: ADALIMUMAB
     Indication: Product used for unknown indication
     Route: 058
  2. Johnson + Johnson [Concomitant]
     Indication: COVID-19 immunisation
     Dosage: FREQUENCY:1-1-1?BOOSTER DOSE
     Route: 030
  3. Johnson + Johnson [Concomitant]
     Indication: COVID-19 immunisation
     Dosage: FREQUENCY:1-1-1
     Route: 030

REACTIONS (1)
  - Drug ineffective [Not Recovered/Not Resolved]
